FAERS Safety Report 7417575-0 (Version None)
Quarter: 2011Q2

REPORT INFORMATION
  Report Type: 
  Country: None (occurrence: None)
  Receive Date: 20110415
  Receipt Date: 20110331
  Transmission Date: 20111010
  Serious: Yes (Hospitalization)
  Sender: FDA-Public Use
  Company Number: PHHY2011US26324

PATIENT
  Sex: Male
  Weight: 62.132 kg

DRUGS (16)
  1. LISINOPRIL [Concomitant]
     Dosage: 10 MG, QD
     Route: 048
  2. SIMVASTATIN [Concomitant]
     Dosage: 20 MG, QD
     Route: 048
  3. PREDNISONE [Concomitant]
     Dosage: 10 MG, QD
     Route: 048
  4. AVODART [Concomitant]
     Dosage: 0.5 MG, QD
     Route: 048
  5. PERCOCET [Concomitant]
     Dosage: 1 DF, EVERY 6 HOURS
     Route: 048
  6. MOTRIN [Concomitant]
     Indication: PAIN
     Dosage: 400 MG, EVERY 6 HOURS
     Route: 048
  7. LEVAQUIN [Concomitant]
     Dosage: 500 MG, QD
     Route: 048
  8. EXJADE [Suspect]
     Indication: MYELODYSPLASTIC SYNDROME
     Dosage: 1500 MG DAILY
     Route: 048
     Dates: start: 20090325
  9. ADVAIR HFA [Concomitant]
     Dosage: 50050 UNK, BID
  10. ASPIRIN [Concomitant]
     Dosage: 81 MG, QD
     Route: 048
  11. NEUPOGEN [Concomitant]
  12. GLIPIZIDE [Concomitant]
     Dosage: 10 MG, QD
     Route: 048
  13. ZOFRAN [Concomitant]
     Indication: VOMITING
     Dosage: 8 MG, EVERY 6 HOURS
     Route: 048
  14. PROCRIT [Concomitant]
  15. GLUCOPHAGE [Concomitant]
     Dosage: 500 MG, BID
     Route: 048
  16. PREDNISONE [Concomitant]
     Dosage: 20 MG, QD
     Route: 048

REACTIONS (20)
  - BULLOUS LUNG DISEASE [None]
  - NEOPLASM MALIGNANT [None]
  - PYREXIA [None]
  - DYSPNOEA [None]
  - LUNG SQUAMOUS CELL CARCINOMA STAGE UNSPECIFIED [None]
  - PNEUMONIA [None]
  - ATRIAL FLUTTER [None]
  - PLEURAL DISORDER [None]
  - ANAEMIA [None]
  - PULMONARY MASS [None]
  - CARDIAC FAILURE CONGESTIVE [None]
  - THROMBOCYTOPENIA [None]
  - AGEUSIA [None]
  - HYPERSOMNIA [None]
  - FATIGUE [None]
  - PULMONARY BULLA [None]
  - CHILLS [None]
  - INCREASED UPPER AIRWAY SECRETION [None]
  - LEFT VENTRICULAR DYSFUNCTION [None]
  - ATRIAL CONDUCTION TIME PROLONGATION [None]
